FAERS Safety Report 8018672-1 (Version None)
Quarter: 2012Q1

REPORT INFORMATION
  Report Type: 
  Country: None (occurrence: None)
  Receive Date: 20120103
  Receipt Date: 20120103
  Transmission Date: 20120608
  Serious: Yes (Other)
  Sender: FDA-Public Use
  Company Number: None

PATIENT
  Age: 36 Year
  Sex: Male
  Weight: 84.368 kg

DRUGS (1)
  1. PROPECIA [Suspect]
     Indication: ALOPECIA
     Dosage: 1
     Route: 048
     Dates: start: 20100702, end: 20100803

REACTIONS (4)
  - LIBIDO DECREASED [None]
  - SEXUAL DYSFUNCTION [None]
  - ERECTILE DYSFUNCTION [None]
  - MENTAL DISORDER [None]
